FAERS Safety Report 8832183 (Version 2)
Quarter: 2014Q3

REPORT INFORMATION
  Report Type: Spontaneous
  Country: US (occurrence: US)
  Receive Date: 20121009
  Receipt Date: 20140827
  Transmission Date: 20150326
  Serious: Yes (Hospitalization, Other)
  Sender: FDA-Public Use
  Company Number: US-009507513-2010SP055778

PATIENT
  Sex: Female
  Weight: 123.36 kg

DRUGS (3)
  1. LEVOTHYROXINE SODIUM. [Concomitant]
     Active Substance: LEVOTHYROXINE SODIUM
     Indication: HYPOTHYROIDISM
     Dosage: 75 MG, UNK
     Dates: start: 2007
  2. NUVARING [Suspect]
     Active Substance: ETHINYL ESTRADIOL\ETONOGESTREL
     Indication: CONTRACEPTION
     Route: 067
     Dates: start: 20081021, end: 20081121
  3. ABILIFY [Concomitant]
     Active Substance: ARIPIPRAZOLE
     Indication: BIPOLAR DISORDER
     Dosage: 10 MG, UNK
     Dates: start: 2008, end: 2009

REACTIONS (9)
  - Anxiety disorder due to a general medical condition [Unknown]
  - Asthma [Unknown]
  - Alopecia [Unknown]
  - Stress [Unknown]
  - Adverse drug reaction [Unknown]
  - Anticoagulation drug level [Unknown]
  - Pain in extremity [Unknown]
  - Pulmonary embolism [Unknown]
  - Microcytic anaemia [Unknown]

NARRATIVE: CASE EVENT DATE: 20081114
